FAERS Safety Report 20946569 (Version 1)
Quarter: 2022Q2

REPORT INFORMATION
  Report Type: Spontaneous
  Country: US (occurrence: None)
  Receive Date: 20220610
  Receipt Date: 20220610
  Transmission Date: 20220721
  Serious: No
  Sender: FDA-Public Use
  Company Number: 2022A182927

PATIENT
  Age: 80 Year

DRUGS (2)
  1. ROSUVASTATIN [Suspect]
     Active Substance: ROSUVASTATIN
     Route: 048
  2. BRILINTA [Suspect]
     Active Substance: TICAGRELOR
     Route: 048

REACTIONS (6)
  - Skin discolouration [Unknown]
  - Muscular weakness [Unknown]
  - Memory impairment [Unknown]
  - Fatigue [Unknown]
  - Blood glucose increased [Unknown]
  - Blood cholesterol decreased [Unknown]
